FAERS Safety Report 23154173 (Version 1)
Quarter: 2023Q4

REPORT INFORMATION
  Report Type: Spontaneous
  Country: US (occurrence: None)
  Receive Date: 20231107
  Receipt Date: 20231107
  Transmission Date: 20240109
  Serious: Yes (Hospitalization)
  Sender: FDA-Public Use
  Company Number: None

PATIENT
  Age: 75 Year
  Sex: Male

DRUGS (14)
  1. ABIRATERONE ACETATE [Suspect]
     Active Substance: ABIRATERONE ACETATE
     Indication: Prostate cancer
     Dosage: 250 MG ORAL??TAKE 4 TABLETS BY MOUTH EVERY DAY?
     Route: 048
     Dates: start: 20230217
  2. ABIRATERONE ACETATE [Suspect]
     Active Substance: ABIRATERONE ACETATE
     Dosage: FREQUENCY : DAILY;?
     Route: 048
  3. ASPIRIN [Concomitant]
     Active Substance: ASPIRIN
     Indication: Prostate cancer
     Dosage: FREQUENCY : DAILY;?
     Route: 048
     Dates: start: 20230217
  4. ASPIRIN [Concomitant]
     Active Substance: ASPIRIN
     Dosage: FREQUENCY : DAILY;?
     Route: 048
  5. CARVEDILOL [Concomitant]
     Active Substance: CARVEDILOL
     Indication: Prostate cancer
     Dosage: FREQUENCY : DAILY;?
     Route: 048
     Dates: start: 20230217
  6. CARVEDILOL [Concomitant]
     Active Substance: CARVEDILOL
     Dosage: FREQUENCY : DAILY;?
     Route: 048
  7. MULTIVITAMIN [Concomitant]
     Indication: Prostate cancer
     Dosage: FREQUENCY : DAILY;?
     Route: 048
     Dates: start: 20230217
  8. MULTIVITAMIN [Concomitant]
     Dosage: FREQUENCY : DAILY;?
     Route: 048
  9. PREDNISONE [Concomitant]
     Indication: Prostate cancer
     Dosage: FREQUENCY : DAILY;?
     Route: 048
     Dates: start: 20230217
  10. PREDNISONE [Concomitant]
     Dosage: FREQUENCY : DAILY;?
     Route: 048
  11. ROSUVASTATIN [Concomitant]
     Indication: Prostate cancer
     Dosage: FREQUENCY : DAILY;?
     Route: 048
     Dates: start: 20230217
  12. ROSUVASTATIN [Concomitant]
     Dosage: FREQUENCY : DAILY;?
     Route: 048
  13. POT CHLORIDE POW [Concomitant]
     Indication: Prostate cancer
     Dosage: FREQUENCY : DAILY;?
     Route: 048
     Dates: start: 20230217
  14. POT CHLORIDE POW [Concomitant]
     Dosage: FREQUENCY : DAILY;?
     Route: 048

REACTIONS (1)
  - Hospitalisation [None]

NARRATIVE: CASE EVENT DATE: 20231102
